FAERS Safety Report 16483818 (Version 6)
Quarter: 2019Q4

REPORT INFORMATION
  Report Type: Spontaneous
  Country: US (occurrence: US)
  Receive Date: 20190627
  Receipt Date: 20191016
  Transmission Date: 20200122
  Serious: No
  Sender: FDA-Public Use
  Company Number: US-PFIZER INC-2019274104

PATIENT
  Age: 69 Year
  Sex: Female
  Weight: 42.86 kg

DRUGS (4)
  1. INLYTA [Suspect]
     Active Substance: AXITINIB
     Indication: FLUID RETENTION
     Dosage: 5 MG, 2X/DAY
     Route: 048
     Dates: start: 201903
  2. INLYTA [Suspect]
     Active Substance: AXITINIB
     Indication: RENAL CANCER METASTATIC
     Dosage: 5 MG, DAILY
     Route: 048
  3. NORCO [Concomitant]
     Active Substance: ACETAMINOPHEN\HYDROCODONE BITARTRATE
     Indication: PAIN
     Dosage: UNK, AS NEEDED (HYDROCODONE BITARTRATE: 10 MG; PARACETAMOL: 325 MG)
  4. AMBIEN [Concomitant]
     Active Substance: ZOLPIDEM TARTRATE
     Dosage: 10 MG, UNK (AT SLEEP)

REACTIONS (2)
  - Dyspnoea [Unknown]
  - Malaise [Unknown]
